FAERS Safety Report 12589442 (Version 1)
Quarter: 2016Q3

REPORT INFORMATION
  Report Type: Spontaneous
  Country: BR (occurrence: BR)
  Receive Date: 20160725
  Receipt Date: 20160725
  Transmission Date: 20161109
  Serious: Yes (Other)
  Sender: FDA-Public Use
  Company Number: BR-AMGEN-BRASP2013051756

PATIENT
  Age: 73 Year
  Sex: Male
  Weight: 65 kg

DRUGS (3)
  1. RYTMONORM [Concomitant]
     Active Substance: PROPAFENONE
     Indication: ARRHYTHMIA
     Dosage: STRENGTH 300MG, AT HALF TABLET (150MG) A DAY
  2. ENBREL [Suspect]
     Active Substance: ETANERCEPT
     Indication: RHEUMATOID ARTHRITIS
     Dosage: 50 MG, ONCE WEEKLY
     Route: 058
     Dates: start: 20130619
  3. CAPTOPRIL. [Concomitant]
     Active Substance: CAPTOPRIL
     Indication: HYPERTENSION
     Dosage: 20 MG, ONCE A DAY

REACTIONS (6)
  - Skin lesion [Unknown]
  - Hypertension [Unknown]
  - Anxiety [Unknown]
  - Body temperature abnormal [Unknown]
  - Condition aggravated [Unknown]
  - Pain [Not Recovered/Not Resolved]
